FAERS Safety Report 13756853 (Version 6)
Quarter: 2017Q4

REPORT INFORMATION
  Report Type: Spontaneous
  Country: US (occurrence: US)
  Receive Date: 20170714
  Receipt Date: 20171013
  Transmission Date: 20180320
  Serious: Yes (Hospitalization)
  Sender: FDA-Public Use
  Company Number: US-ACTELION-A-US2017-155810

PATIENT
  Age: 73 Year
  Sex: Female

DRUGS (1)
  1. OPSUMIT [Suspect]
     Active Substance: MACITENTAN
     Indication: PULMONARY ARTERIAL HYPERTENSION
     Dosage: 10 MG, QD
     Route: 048
     Dates: start: 20170523

REACTIONS (10)
  - Dyspnoea [Recovering/Resolving]
  - Cardiac valve disease [Recovering/Resolving]
  - Pulmonary arterial hypertension [Recovering/Resolving]
  - Fatigue [Unknown]
  - Tremor [Unknown]
  - Oedema peripheral [Recovering/Resolving]
  - Asthenia [Unknown]
  - Malaise [Unknown]
  - Cardiac failure congestive [Recovering/Resolving]
  - Pulmonary oedema [Not Recovered/Not Resolved]
